FAERS Safety Report 19628050 (Version 1)
Quarter: 2021Q3

REPORT INFORMATION
  Report Type: Spontaneous
  Country: US (occurrence: US)
  Receive Date: 20210729
  Receipt Date: 20210729
  Transmission Date: 20211014
  Serious: Yes (Other)
  Sender: FDA-Public Use
  Company Number: US-ASTRAZENECA-2021A634643

PATIENT
  Age: 37 Year
  Sex: Male
  Weight: 113.4 kg

DRUGS (1)
  1. SEROQUEL [Suspect]
     Active Substance: QUETIAPINE FUMARATE
     Indication: SLEEP DISORDER
     Dosage: 200.0MG ONCE/SINGLE ADMINISTRATION
     Route: 048
     Dates: start: 20210304, end: 20210604

REACTIONS (2)
  - Erectile dysfunction [Unknown]
  - Priapism [Recovering/Resolving]

NARRATIVE: CASE EVENT DATE: 20210319
